FAERS Safety Report 6504775-7 (Version None)
Quarter: 2009Q4

REPORT INFORMATION
  Report Type: 
  Country: None (occurrence: None)
  Receive Date: 20091215
  Receipt Date: 20091124
  Transmission Date: 20100525
  Serious: No
  Sender: FDA-Public Use
  Company Number: CIO09021096

PATIENT
  Sex: Female

DRUGS (2)
  1. SINEX NASAL SPRAY OR MIST, VERSION UNKNOWN (CAMPHOR 0.067 MG, EUCALYPT [Suspect]
     Dosage: INTRANASAL
     Route: 045
  2. SINEX VAPOSPRAY 12 H OUR DECONGESTANT ULTRA FINE MIST(CAMPHOE, EUCALYP [Suspect]
     Dosage: INTRANASAL
     Route: 045

REACTIONS (6)
  - INCORRECT DOSE ADMINISTERED [None]
  - INCORRECT DRUG ADMINISTRATION DURATION [None]
  - NASAL DISORDER [None]
  - RESPIRATORY TRACT CONGESTION [None]
  - RESPIRATORY TRACT INFECTION [None]
  - SCAR [None]
